FAERS Safety Report 7134027-6 (Version None)
Quarter: 2010Q4

REPORT INFORMATION
  Report Type: 
  Country: None (occurrence: None)
  Receive Date: 20101117
  Receipt Date: 20101102
  Transmission Date: 20110411
  Serious: Yes (Other)
  Sender: FDA-Public Use
  Company Number: 011820

PATIENT
  Sex: Male

DRUGS (3)
  1. BUSULFEX [Suspect]
  2. CYCLOPHOSPHAMIDE [Concomitant]
  3. MELPHALAN HYDROCHLORIDE [Concomitant]

REACTIONS (1)
  - AUTOIMMUNE THROMBOCYTOPENIA [None]
